FAERS Safety Report 4304819-7 (Version None)
Quarter: 2004Q1

REPORT INFORMATION
  Report Type: 
  Country: None (occurrence: None)
  Receive Date: 20040225
  Receipt Date: 20040225
  Transmission Date: 20041129
  Serious: Yes (Other)
  Sender: FDA-Public Use
  Company Number: None

PATIENT
  Sex: Female
  Weight: 60.3284 kg

DRUGS (3)
  1. TIZANIDINE  52MG [Suspect]
     Indication: MUSCLE SPASMS
     Dosage: 1/2 PO BID AND 1 PO QHS
     Route: 048
     Dates: start: 20021208, end: 20021209
  2. TIZANIDINE  52MG [Suspect]
     Indication: RADICULOPATHY
     Dosage: 1/2 PO BID AND 1 PO QHS
     Route: 048
     Dates: start: 20021208, end: 20021209
  3. TIZANIDINE  52MG [Suspect]
     Indication: SCIATICA
     Dosage: 1/2 PO BID AND 1 PO QHS
     Route: 048
     Dates: start: 20021208, end: 20021209

REACTIONS (4)
  - ASTHENIA [None]
  - FATIGUE [None]
  - FEELING ABNORMAL [None]
  - PHARMACEUTICAL PRODUCT COMPLAINT [None]
